FAERS Safety Report 22361565 (Version 1)
Quarter: 2023Q2

REPORT INFORMATION
  Report Type: Spontaneous
  Country: US (occurrence: None)
  Receive Date: 20230523
  Receipt Date: 20230523
  Transmission Date: 20230721
  Serious: Yes (Other)
  Sender: FDA-Public Use
  Company Number: None

PATIENT
  Age: 67 Year
  Sex: Female

DRUGS (1)
  1. LATANOPROST [Suspect]
     Active Substance: LATANOPROST
     Dosage: FREQUENCY : AT BEDTIME;?
     Route: 047
     Dates: start: 20150720, end: 20150901

REACTIONS (1)
  - Eye swelling [None]

NARRATIVE: CASE EVENT DATE: 20160404
